FAERS Safety Report 9306428 (Version 1)
Quarter: 2013Q2

REPORT INFORMATION
  Report Type: Spontaneous
  Country: US (occurrence: US)
  Receive Date: 20130523
  Receipt Date: 20130523
  Transmission Date: 20140414
  Serious: No
  Sender: FDA-Public Use
  Company Number: US-009507513-1305USA008259

PATIENT
  Sex: Male

DRUGS (4)
  1. ASMANEX TWISTHALER [Suspect]
     Indication: ASTHMA
     Dosage: 1 PUFF, QD
     Route: 055
     Dates: start: 201210
  2. XOPENEX [Concomitant]
  3. ALBUTEROL [Concomitant]
  4. PULMICORT [Concomitant]

REACTIONS (3)
  - Asthma [Unknown]
  - Device use error [Unknown]
  - Drug dose omission [Unknown]
